FAERS Safety Report 5272977-6 (Version None)
Quarter: 2007Q1

REPORT INFORMATION
  Report Type: 
  Country: None (occurrence: None)
  Receive Date: 20061214
  Receipt Date: 20060824
  Transmission Date: 20070707
  Serious: Yes (Other)
  Sender: FDA-Public Use
  Company Number: 2006105724

PATIENT
  Sex: Male

DRUGS (2)
  1. BEXTRA [Suspect]
     Dosage: 10 MG (10 MG, 1 IN 1 D)
     Dates: start: 20020612
  2. VIOXX [Suspect]
     Indication: PAIN
     Dosage: 50 MG (50 MG, 1 IN 1 D)
     Dates: start: 20020102, end: 20020611

REACTIONS (1)
  - MYOCARDIAL INFARCTION [None]
